FAERS Safety Report 7967468-5 (Version None)
Quarter: 2011Q4

REPORT INFORMATION
  Report Type: 
  Country: None (occurrence: None)
  Receive Date: 20111207
  Receipt Date: 20111128
  Transmission Date: 20120403
  Serious: Yes (Life-Threatening)
  Sender: FDA-Public Use
  Company Number: 1118039

PATIENT
  Age: 2 Day
  Sex: Female
  Weight: 2.54 kg

DRUGS (2)
  1. LIDOCAINE 2% + EPINEPHRINE 1:100,000 INJ., USP 20ML MULTI-DOSE FLIPTOP [Suspect]
     Indication: PAIN
     Dosage: 5 CC, 5 CC
  2. LIDOCAINE 2% + EPINEPHRINE 1:100,000 INJ., USP 20ML MULTI-DOSE FLIPTOP [Suspect]
     Indication: HAEMOSTASIS
     Dosage: 5 CC, 5 CC

REACTIONS (2)
  - CYANOSIS [None]
  - METHAEMOGLOBINAEMIA [None]
